FAERS Safety Report 6197241-2 (Version None)
Quarter: 2009Q2

REPORT INFORMATION
  Report Type: 
  Country: None (occurrence: None)
  Receive Date: 20090521
  Receipt Date: 20090507
  Transmission Date: 20091009
  Serious: Yes (Other)
  Sender: FDA-Public Use
  Company Number: US-RANBAXY-2009RR-24080

PATIENT
  Age: 48 Year

DRUGS (12)
  1. TACROLIMUS [Suspect]
     Indication: IMMUNOSUPPRESSION
     Route: 061
  2. TACROLIMUS [Suspect]
     Indication: TRANSPLANT REJECTION
  3. MYCOPHENOLATE MOFETIL [Suspect]
     Indication: IMMUNOSUPPRESSION
     Dosage: UNK
  4. ANTI-THYMOCYTE GLOBULIN NOS [Suspect]
     Indication: IMMUNOSUPPRESSION
     Dosage: 1.5 MG/KG, UNK
  5. METHYLPREDNISOLONE [Suspect]
     Indication: IMMUNOSUPPRESSION
     Dosage: 500 MG, UNK
  6. METHYLPREDNISOLONE [Suspect]
     Dosage: 20 MG, UNK
  7. PREDNISOLONE [Suspect]
     Dosage: 5 MG, QD
  8. SIROLIMUS [Suspect]
     Indication: IMMUNOSUPPRESSION
  9. GANCICLOVIR [Suspect]
     Indication: PROPHYLAXIS
     Dosage: 3 G, QD
     Route: 048
  10. GANCICLOVIR [Suspect]
     Dosage: 10 MG/KG, UNK
     Route: 042
  11. PIPERACILLIN SODIUM AND TAZOBACTAM SODIUM [Concomitant]
     Indication: ANTIBIOTIC PROPHYLAXIS
     Dosage: 4.5 G, TID
  12. CO-TRIMOXAZOLE [Concomitant]
     Dosage: UNK

REACTIONS (1)
  - CYTOMEGALOVIRUS INFECTION [None]
